FAERS Safety Report 6647026-5 (Version None)
Quarter: 2010Q1

REPORT INFORMATION
  Report Type: 
  Country: None (occurrence: None)
  Receive Date: 20100323
  Receipt Date: 20100205
  Transmission Date: 20100710
  Serious: No
  Sender: FDA-Public Use
  Company Number: A0843249A

PATIENT
  Age: 52 Year
  Sex: Female

DRUGS (4)
  1. LAMICTAL CD [Suspect]
     Dosage: 100MG PER DAY
     Route: 048
     Dates: start: 20100106
  2. IMITREX [Concomitant]
  3. LEXAPRO [Concomitant]
  4. EFFEXOR [Concomitant]

REACTIONS (1)
  - MIDDLE INSOMNIA [None]
